FAERS Safety Report 7752311-X (Version None)
Quarter: 2011Q3

REPORT INFORMATION
  Report Type: 
  Country: None (occurrence: None)
  Receive Date: 20110915
  Receipt Date: 20110907
  Transmission Date: 20111222
  Serious: Yes (Death, Other)
  Sender: FDA-Public Use
  Company Number: FR-ASTELLAS-2011EU006179

PATIENT
  Sex: Male
  Weight: 93 kg

DRUGS (6)
  1. FUNGIZONE [Concomitant]
     Indication: RESPIRATORY DISORDER
     Dosage: 9 ML, UNKNOWN/D
     Route: 048
     Dates: start: 20101021, end: 20101203
  2. TIENAM [Concomitant]
     Indication: SEPTIC SHOCK
     Dosage: 3 G, UNKNOWN/D
     Route: 042
     Dates: start: 20101108, end: 20101109
  3. MICAFUNGIN INJECTION [Suspect]
     Indication: ANTIFUNGAL PROPHYLAXIS
     Dosage: 100 MG, UNKNOWN/D
     Route: 042
     Dates: start: 20101020, end: 20101108
  4. AMPHOTERICIN B [Concomitant]
     Indication: RESPIRATORY DISORDER
     Dosage: 3 MG, UNK
     Route: 007
     Dates: start: 20101107, end: 20101217
  5. ZYVOX [Concomitant]
     Indication: SEPTIC SHOCK
     Dosage: 1.2 G, UNKNOWN/D
     Route: 042
     Dates: start: 20101108, end: 20101109
  6. NOREPINEPHRINE BITARTRATE [Concomitant]
     Indication: SEPTIC SHOCK
     Dosage: 0.9 UNK, UNKNOWN/D
     Route: 042
     Dates: start: 20101108, end: 20101110

REACTIONS (3)
  - CANDIDIASIS [None]
  - MULTI-ORGAN FAILURE [None]
  - DRUG INEFFECTIVE [None]
